FAERS Safety Report 17202076 (Version 5)
Quarter: 2020Q1

REPORT INFORMATION
  Report Type: Report from Study
  Country: US (occurrence: US)
  Receive Date: 20191226
  Receipt Date: 20200212
  Transmission Date: 20200409
  Serious: Yes (Other)
  Sender: FDA-Public Use
  Company Number: US-TAIHO ONCOLOGY  INC-EU-2019-03435

PATIENT
  Age: 84 Year
  Sex: Female
  Weight: 59.02 kg

DRUGS (17)
  1. MULTIPLE VITAMINS [Concomitant]
     Active Substance: VITAMINS
     Dosage: NI
  2. VITAMIN E [Concomitant]
     Active Substance: .ALPHA.-TOCOPHEROL
     Dosage: NI
  3. LONSURF [Suspect]
     Active Substance: TIPIRACIL HYDROCHLORIDE\TRIFLURIDINE
     Indication: COLON CANCER METASTATIC
     Dosage: LONSURF WAS INTERRUPTED ON AN UNKNOWN DATE IN OCTOBER 2019 FOR TEN DAYS. TREATMENT RESUMED ON 29/OCT
     Route: 048
     Dates: start: 20190826, end: 20191210
  4. ICAPS AREDS [Concomitant]
     Active Substance: MINERALS\VITAMINS
     Dosage: NI
  5. NEURONTIN [Concomitant]
     Active Substance: GABAPENTIN
     Dates: start: 201904
  6. ALIVE [Concomitant]
  7. COQ10 [Concomitant]
     Active Substance: UBIDECARENONE
     Dosage: NI
  8. TART CHERRY [Concomitant]
     Dosage: NI
  9. VITAMIN B12 [Concomitant]
     Active Substance: CYANOCOBALAMIN
     Dosage: NI
  10. LONSURF [Suspect]
     Active Substance: TIPIRACIL HYDROCHLORIDE\TRIFLURIDINE
     Indication: COLON CANCER METASTATIC
  11. PROBIOTIC [Concomitant]
     Active Substance: PROBIOTICS NOS
     Dosage: NI
  12. VITAMIN D [Concomitant]
     Active Substance: VITAMIN D NOS
     Dosage: NI
  13. CURCUMIN [Concomitant]
     Active Substance: CURCUMIN
     Dosage: NI
  14. VITAMIN B1 [Concomitant]
     Active Substance: THIAMINE HYDROCHLORIDE
     Dosage: NI
  15. CRANBERRY. [Concomitant]
     Active Substance: CRANBERRY
     Dosage: NI
  16. TURMERIC [Concomitant]
     Active Substance: HERBALS\TURMERIC
     Dosage: NI
  17. NIACIN. [Concomitant]
     Active Substance: NIACIN
     Dosage: NI

REACTIONS (17)
  - Condition aggravated [Not Recovered/Not Resolved]
  - Dry skin [Unknown]
  - Insomnia [Unknown]
  - Anxiety [Unknown]
  - White blood cell count decreased [Not Recovered/Not Resolved]
  - Asthenia [Not Recovered/Not Resolved]
  - Alopecia [Not Recovered/Not Resolved]
  - Fatigue [Not Recovered/Not Resolved]
  - Disease progression [Unknown]
  - Diarrhoea [Unknown]
  - Nail disorder [Unknown]
  - Feeling abnormal [Unknown]
  - Thirst [Not Recovered/Not Resolved]
  - Pelvic mass [Unknown]
  - Dehydration [Unknown]
  - Abdominal pain [Not Recovered/Not Resolved]
  - Radiation injury [Unknown]

NARRATIVE: CASE EVENT DATE: 2019
